FAERS Safety Report 8974688 (Version 1)
Quarter: 2012Q4

REPORT INFORMATION
  Report Type: Report from Study
  Country: CA (occurrence: CA)
  Receive Date: 20121219
  Receipt Date: 20121219
  Transmission Date: 20130627
  Serious: Yes (Hospitalization, Other)
  Sender: FDA-Public Use
  Company Number: CA-ROCHE-GNE319892

PATIENT
  Age: 49 Year
  Sex: Male
  Weight: 102.11 kg

DRUGS (2)
  1. XOLAIR [Suspect]
     Indication: ASTHMA
     Dosage: 375 mg, Unknown
     Route: 058
     Dates: start: 20051103
  2. XOLAIR [Suspect]
     Dosage: 375 mg, Unknown
     Route: 058
     Dates: start: 20061019

REACTIONS (14)
  - Chest pain [Recovered/Resolved]
  - Chest discomfort [Unknown]
  - Bronchitis [Recovered/Resolved]
  - Asthma [Recovered/Resolved]
  - Dyspnoea [Recovered/Resolved]
  - Seasonal allergy [Recovered/Resolved]
  - Respiratory tract congestion [Unknown]
  - Tooth infection [Unknown]
  - Oropharyngeal pain [Unknown]
  - Nasopharyngitis [Unknown]
  - Nasal congestion [Unknown]
  - Fatigue [Recovering/Resolving]
  - Injection site swelling [Recovering/Resolving]
  - Dyspepsia [Unknown]
